FAERS Safety Report 11543919 (Version 3)
Quarter: 2017Q3

REPORT INFORMATION
  Report Type: Spontaneous
  Country: CA (occurrence: CA)
  Receive Date: 20150924
  Receipt Date: 20170718
  Transmission Date: 20171127
  Serious: Yes (Other)
  Sender: FDA-Public Use
  Company Number: CA-ROCHE-GNE302571

PATIENT
  Sex: Female
  Weight: 65 kg

DRUGS (1)
  1. XOLAIR [Suspect]
     Active Substance: OMALIZUMAB
     Indication: ASTHMA
     Dosage: 375 MG, BIW
     Route: 058
     Dates: start: 20070413

REACTIONS (7)
  - Hypersensitivity [Unknown]
  - Pneumonia [Recovering/Resolving]
  - Heart rate increased [Unknown]
  - Blood pressure decreased [Unknown]
  - Systemic lupus erythematosus [Unknown]
  - Bronchitis [Recovering/Resolving]
  - Fibromyalgia [Unknown]
